FAERS Safety Report 24538368 (Version 2)
Quarter: 2024Q4

REPORT INFORMATION
  Report Type: Spontaneous
  Country: TW (occurrence: TW)
  Receive Date: 20241023
  Receipt Date: 20241026
  Transmission Date: 20250114
  Serious: Yes (Other)
  Sender: AMGEN
  Company Number: TW-PFIZER INC-PV202400134540

PATIENT
  Sex: Male

DRUGS (1)
  1. ENBREL [Suspect]
     Active Substance: ETANERCEPT
     Indication: Ankylosing spondylitis
     Dosage: 25 MG, 2X/WEEK
     Route: 058
     Dates: start: 20201020

REACTIONS (1)
  - Iritis [Not Recovered/Not Resolved]

NARRATIVE: CASE EVENT DATE: 20241015
